FAERS Safety Report 4688602-9 (Version None)
Quarter: 2005Q2

REPORT INFORMATION
  Report Type: 
  Country: None (occurrence: None)
  Receive Date: 20050613
  Receipt Date: 20050606
  Transmission Date: 20051028
  Serious: Yes (Hospitalization)
  Sender: FDA-Public Use
  Company Number: PHBS2005BR08112

PATIENT
  Age: 55 Year
  Sex: Female

DRUGS (2)
  1. CLAVULIN [Suspect]
     Indication: SINUSITIS
     Dosage: 500 MG
     Route: 065
  2. FORADIL [Suspect]
     Indication: ASTHMA
     Dosage: 1 DF, Q12H
     Dates: start: 20050301

REACTIONS (6)
  - ASTHMA [None]
  - HYPERSENSITIVITY [None]
  - LOCALISED OEDEMA [None]
  - RHINITIS ALLERGIC [None]
  - SINUSITIS [None]
  - SWELLING FACE [None]
